FAERS Safety Report 5536565-6 (Version None)
Quarter: 2007Q4

REPORT INFORMATION
  Report Type: 
  Country: None (occurrence: None)
  Receive Date: 20071204
  Receipt Date: 20071116
  Transmission Date: 20080405
  Serious: Yes (Hospitalization, Other)
  Sender: FDA-Public Use
  Company Number: DSA_30945_2007

PATIENT
  Age: 61 Year
  Sex: Female

DRUGS (2)
  1. DILTIAZEM HYDROCHLORIDE [Suspect]
     Indication: HYPERTENSION
     Dosage: 300 MG QD ORAL
     Route: 048
     Dates: start: 20030101
  2. LOPRIL/00498401/ (LOPRIL-CAPTOPRIL) [Suspect]
     Indication: HYPERTENSION
     Dosage: DF ORAL
     Route: 048
     Dates: start: 20020101

REACTIONS (1)
  - PANCREATITIS ACUTE [None]
